FAERS Safety Report 9594561 (Version 2)
Quarter: 2014Q2

REPORT INFORMATION
  Report Type: Spontaneous
  Country: US (occurrence: None)
  Receive Date: 20131002
  Receipt Date: 20140430
  Transmission Date: 20141212
  Serious: Yes (Death, Hospitalization, Other)
  Sender: FDA-Public Use
  Company Number: 2013-US-001256

PATIENT
  Age: 42 Year
  Sex: Male
  Weight: 90.7 kg

DRUGS (4)
  1. XYREM [Suspect]
     Indication: CATAPLEXY
     Route: 048
     Dates: start: 20110727
  2. XYREM [Suspect]
     Indication: NARCOLEPSY
     Route: 048
     Dates: start: 20110727
  3. PROVIGIL (MODAFINIL) [Concomitant]
  4. ADDERALL (AMFETAMINE ASPARTATE, AMPHETAMINE SULFATE, DEXAMFETAMINE SACCHARATE, DEXAMFETAMINE SULFATE) [Concomitant]

REACTIONS (9)
  - Mental disorder [None]
  - Myocardial infarction [None]
  - Lower limb fracture [None]
  - Psychogenic seizure [None]
  - Fall [None]
  - Cataplexy [None]
  - Necrotising fasciitis [None]
  - Back pain [None]
  - Hallucination [None]
